FAERS Safety Report 10379607 (Version 4)
Quarter: 2015Q2

REPORT INFORMATION
  Report Type: Report from Study
  Country: US (occurrence: US)
  Receive Date: 20140812
  Receipt Date: 20150526
  Transmission Date: 20150821
  Serious: Yes (Hospitalization, Other)
  Sender: FDA-Public Use
  Company Number: PHEH2014US015773

PATIENT
  Age: 2 Year
  Sex: Male
  Weight: 15.42 kg

DRUGS (11)
  1. LYSINE [Concomitant]
     Active Substance: LYSINE
     Indication: ORAL PAIN
     Route: 048
  2. DEPAKOTE [Concomitant]
     Active Substance: DIVALPROEX SODIUM
     Indication: SEIZURE
     Dosage: 500 MG, TID
     Route: 048
  3. DILANTIN [Concomitant]
     Active Substance: PHENYTOIN
     Indication: SEIZURE
     Dosage: 75 MG IN AM AND AT NIGHT AND 50 MG IN AFTERNOON
     Route: 048
  4. AFINITOR [Suspect]
     Active Substance: EVEROLIMUS
     Indication: ASTROCYTOMA, LOW GRADE
     Dosage: 2 MG, QD
     Route: 048
     Dates: start: 201404
  5. ONFI [Concomitant]
     Active Substance: CLOBAZAM
     Dosage: 1.25 DF, QD
     Route: 048
  6. ONFI [Concomitant]
     Active Substance: CLOBAZAM
     Indication: SEIZURE
     Dosage: 1 DF, QD
     Route: 048
  7. LEVOCARNITINE. [Concomitant]
     Active Substance: LEVOCARNITINE
     Indication: BLOOD TEST ABNORMAL
     Dosage: 1 DF, BID
     Route: 048
  8. DILANTIN [Concomitant]
     Active Substance: PHENYTOIN
     Dosage: 1.5 DF, TID
     Route: 048
     Dates: start: 20141001
  9. AFINITOR [Suspect]
     Active Substance: EVEROLIMUS
     Indication: GANGLIOGLIOMA
     Dosage: 4 MG, QD
     Route: 048
  10. LEVOCARNITINE. [Concomitant]
     Active Substance: LEVOCARNITINE
     Dosage: 1.5 DF, TID
     Route: 048
  11. AFINITOR [Suspect]
     Active Substance: EVEROLIMUS
     Dosage: 2 MG, QOD AND 4 MG ON OPPOSITE DAYS
     Route: 048
     Dates: start: 20140731

REACTIONS (5)
  - Muscular weakness [Unknown]
  - Disease progression [Unknown]
  - Nodule [Not Recovered/Not Resolved]
  - Vomiting [Recovered/Resolved]
  - Seizure [Unknown]

NARRATIVE: CASE EVENT DATE: 20140705
